FAERS Safety Report 5330095-2 (Version None)
Quarter: 2007Q2

REPORT INFORMATION
  Report Type: 
  Country: None (occurrence: None)
  Receive Date: 20070521
  Receipt Date: 20070517
  Transmission Date: 20071010
  Serious: Yes (Other)
  Sender: FDA-Public Use
  Company Number: US-MERCK-0705USA02453

PATIENT
  Age: 31 Year
  Sex: Male
  Weight: 82 kg

DRUGS (3)
  1. PROPECIA [Suspect]
     Indication: MALE PATTERN BALDNESS
     Route: 048
     Dates: start: 20061101, end: 20070101
  2. KEPPRA [Concomitant]
     Route: 065
  3. TEGRETOL [Concomitant]
     Route: 048

REACTIONS (1)
  - SIMPLE PARTIAL SEIZURES [None]
